FAERS Safety Report 6187138-6 (Version None)
Quarter: 2009Q2

REPORT INFORMATION
  Report Type: 
  Country: None (occurrence: None)
  Receive Date: 20090508
  Receipt Date: 20090325
  Transmission Date: 20091009
  Serious: Yes (Other)
  Sender: FDA-Public Use
  Company Number: WAES 0903USA04715

PATIENT
  Age: 74 Year
  Sex: Male

DRUGS (1)
  1. JANUMET [Suspect]
     Indication: DIABETES MELLITUS
     Dosage: 50-1000 MG/BID/PO
     Route: 048
     Dates: start: 20081101, end: 20090317

REACTIONS (1)
  - PANCREATITIS [None]
